FAERS Safety Report 10167102 (Version 1)
Quarter: 2014Q2

REPORT INFORMATION
  Report Type: Spontaneous
  Country: US (occurrence: None)
  Receive Date: 20140509
  Receipt Date: 20140509
  Transmission Date: 20141212
  Serious: Yes (Hospitalization, Disabling)
  Sender: FDA-Public Use
  Company Number: None

PATIENT
  Age: 74 Year
  Sex: Female

DRUGS (1)
  1. OXYTROL [Suspect]
     Indication: URINARY INCONTINENCE
     Dates: start: 20140222, end: 20140302

REACTIONS (1)
  - Pancreatitis [None]
